FAERS Safety Report 17008447 (Version 1)
Quarter: 2019Q4

REPORT INFORMATION
  Report Type: Spontaneous
  Country: AU (occurrence: AU)
  Receive Date: 20191108
  Receipt Date: 20191108
  Transmission Date: 20200122
  Serious: Yes (Life-Threatening, Hospitalization, Other)
  Sender: FDA-Public Use
  Company Number: AU-009507513-1406AUS011456

PATIENT
  Age: 42 Year
  Sex: Female
  Weight: 74 kg

DRUGS (8)
  1. PROPOFOL. [Concomitant]
     Active Substance: PROPOFOL
     Indication: ANAESTHESIA
     Dosage: UNK
     Dates: start: 20140530, end: 20140530
  2. ROCURONIUM BROMIDE. [Concomitant]
     Active Substance: ROCURONIUM BROMIDE
     Indication: MUSCLE RELAXANT THERAPY
     Dosage: UNK
     Dates: start: 20140530, end: 20140530
  3. FENTANYL. [Concomitant]
     Active Substance: FENTANYL
     Indication: ANAESTHESIA
     Dosage: UNK
     Dates: start: 20140530, end: 20140530
  4. CEFAZOLIN [Concomitant]
     Active Substance: CEFAZOLIN
     Dosage: UNK
     Dates: start: 20140530, end: 20140530
  5. BRIDION [Suspect]
     Active Substance: SUGAMMADEX
     Indication: NEUROMUSCULAR BLOCKADE REVERSAL
     Dosage: 200 MGM
     Route: 042
     Dates: start: 20140530, end: 20140530
  6. BETADINE [Concomitant]
     Active Substance: POVIDONE-IODINE
     Indication: INFECTION PROPHYLAXIS
     Dosage: UNK
     Dates: start: 20140530, end: 20140530
  7. MIDAZOLAM [Concomitant]
     Active Substance: MIDAZOLAM HYDROCHLORIDE
     Indication: ANAESTHESIA
     Dosage: UNK
     Dates: start: 20140530, end: 20140530
  8. ONDANSETRON [Concomitant]
     Active Substance: ONDANSETRON
     Dosage: UNK
     Route: 042
     Dates: start: 20140530, end: 20140530

REACTIONS (7)
  - Resuscitation [Recovered/Resolved]
  - Feeling cold [Unknown]
  - Blood pressure abnormal [Recovered/Resolved]
  - Type I hypersensitivity [Recovered/Resolved]
  - Anaphylactic reaction [Recovered/Resolved]
  - Intensive care [Recovered/Resolved]
  - Hypoventilation [Recovered/Resolved]

NARRATIVE: CASE EVENT DATE: 201405
